FAERS Safety Report 17339171 (Version 1)
Quarter: 2020Q1

REPORT INFORMATION
  Report Type: Spontaneous
  Country: US (occurrence: US)
  Receive Date: 20200129
  Receipt Date: 20200129
  Transmission Date: 20200409
  Serious: No
  Sender: FDA-Public Use
  Company Number: US-SA-2020SA023511

PATIENT
  Sex: Female

DRUGS (15)
  1. SULFADIAZINE. [Concomitant]
     Active Substance: SULFADIAZINE
  2. LANTUS [Concomitant]
     Active Substance: INSULIN GLARGINE
  3. JENTADUETO [Concomitant]
     Active Substance: LINAGLIPTIN\METFORMIN HYDROCHLORIDE
  4. ENALAPRIL [Concomitant]
     Active Substance: ENALAPRIL
  5. LEVOCETIRIZIN [Concomitant]
     Active Substance: LEVOCETIRIZINE DIHYDROCHLORIDE
  6. FOLIC ACID. [Concomitant]
     Active Substance: FOLIC ACID
  7. KEVZARA [Suspect]
     Active Substance: SARILUMAB
     Dosage: 200 MG, QOW
     Route: 058
  8. BACLOFEN. [Concomitant]
     Active Substance: BACLOFEN
  9. NEURONTIN [Concomitant]
     Active Substance: GABAPENTIN
  10. ISOSORBIDE. [Concomitant]
     Active Substance: ISOSORBIDE
  11. METOPROLOL. [Concomitant]
     Active Substance: METOPROLOL
  12. FLUTICASONE. [Concomitant]
     Active Substance: FLUTICASONE
  13. ASPIRIN [ACETYLSALICYLIC ACID] [Concomitant]
     Active Substance: ASPIRIN
  14. LYRICA [Concomitant]
     Active Substance: PREGABALIN
  15. PLAQUENIL [Concomitant]
     Active Substance: HYDROXYCHLOROQUINE SULFATE

REACTIONS (1)
  - Pain [Not Recovered/Not Resolved]
